FAERS Safety Report 9697467 (Version 1)
Quarter: 2013Q4

REPORT INFORMATION
  Report Type: Spontaneous
  Country: US (occurrence: None)
  Receive Date: 20131119
  Receipt Date: 20131119
  Transmission Date: 20140711
  Serious: Yes (Other)
  Sender: FDA-Public Use
  Company Number: None

PATIENT
  Age: 75 Year
  Sex: Male

DRUGS (7)
  1. NABUMETONE [Suspect]
     Indication: MUSCLE STRAIN
     Route: 048
     Dates: start: 20130925, end: 20131021
  2. OMEPRAZOLE [Concomitant]
  3. AMOXICILLIN [Concomitant]
  4. METRONIDAZOLE [Concomitant]
  5. CENTRUM [Concomitant]
  6. VITAMIN C [Concomitant]
  7. VITAMIN E [Concomitant]

REACTIONS (1)
  - Faeces discoloured [None]
